FAERS Safety Report 14360177 (Version 1)
Quarter: 2018Q1

REPORT INFORMATION
  Report Type: Report from Study
  Country: None (occurrence: US)
  Receive Date: 20180106
  Receipt Date: 20180106
  Transmission Date: 20180509
  Serious: Yes (Hospitalization, Other)
  Sender: FDA-Public Use
  Company Number: US-ABBVIE-17K-163-2207310-00

PATIENT
  Age: 72 Year
  Sex: Male
  Weight: 149.82 kg

DRUGS (9)
  1. LISINOPRIL. [Concomitant]
     Active Substance: LISINOPRIL
     Indication: HYPERTENSION
  2. MIRAPEX [Concomitant]
     Active Substance: PRAMIPEXOLE DIHYDROCHLORIDE
     Indication: RESTLESS LEGS SYNDROME
  3. ROBAXIN [Concomitant]
     Active Substance: METHOCARBAMOL
     Indication: FIBROMYALGIA
  4. WARFARIN [Concomitant]
     Active Substance: WARFARIN
     Indication: ATRIAL FIBRILLATION
  5. TRAMADOL. [Concomitant]
     Active Substance: TRAMADOL
     Indication: PAIN
  6. HUMIRA [Suspect]
     Active Substance: ADALIMUMAB
     Indication: PSORIATIC ARTHROPATHY
     Route: 058
     Dates: start: 2015
  7. MOBIC [Concomitant]
     Active Substance: MELOXICAM
     Indication: PAIN
  8. TECOSIN [Concomitant]
     Indication: ATRIAL FIBRILLATION
  9. SIMVASTATIN. [Concomitant]
     Active Substance: SIMVASTATIN
     Indication: BLOOD CHOLESTEROL INCREASED

REACTIONS (4)
  - Cerebrospinal fluid circulation disorder [Recovered/Resolved]
  - Pain in extremity [Recovered/Resolved]
  - Gait disturbance [Recovered/Resolved]
  - Nerve compression [Recovered/Resolved]

NARRATIVE: CASE EVENT DATE: 201706
